FAERS Safety Report 5850674-3 (Version None)
Quarter: 2008Q3

REPORT INFORMATION
  Report Type: 
  Country: None (occurrence: None)
  Receive Date: 20080818
  Receipt Date: 20080811
  Transmission Date: 20090109
  Serious: Yes (Life-Threatening)
  Sender: FDA-Public Use
  Company Number: 2008SP016292

PATIENT
  Age: 3 Year
  Sex: Female

DRUGS (7)
  1. TEMOZOLOMIDE [Suspect]
     Indication: MEDULLOBLASTOMA
  2. CISPLATIN [Suspect]
     Indication: MEDULLOBLASTOMA
  3. CYCLOPHOSPHAMIDE [Suspect]
     Indication: MEDULLOBLASTOMA
  4. ETOPOSIDE [Suspect]
     Indication: MEDULLOBLASTOMA
  5. METHOTREXATE [Suspect]
     Indication: MEDULLOBLASTOMA
     Dosage: 400 MG/KG; 200 MG/KG;
  6. VINCRISTINE SULFATE [Suspect]
     Indication: MEDULLOBLASTOMA
  7. GLUCARPIDASE (PREV.) [Concomitant]

REACTIONS (12)
  - ALANINE AMINOTRANSFERASE INCREASED [None]
  - ASCITES [None]
  - BLOOD BILIRUBIN INCREASED [None]
  - BONE MARROW FAILURE [None]
  - DRUG CLEARANCE DECREASED [None]
  - DRUG LEVEL INCREASED [None]
  - HEPATOMEGALY [None]
  - MUCOSAL INFLAMMATION [None]
  - PROTHROMBIN TIME PROLONGED [None]
  - PYREXIA [None]
  - RENAL FAILURE ACUTE [None]
  - VOMITING [None]
